FAERS Safety Report 25702978 (Version 1)
Quarter: 2025Q3

REPORT INFORMATION
  Report Type: Spontaneous
  Country: US (occurrence: US)
  Receive Date: 20250819
  Receipt Date: 20250819
  Transmission Date: 20251020
  Serious: No
  Sender: BLUEPRINT MEDICINES
  Company Number: US-Blueprint Medicines Corporation-2025-AER-01800

PATIENT
  Age: 44 Year
  Sex: Female

DRUGS (1)
  1. AYVAKIT [Suspect]
     Active Substance: AVAPRITINIB
     Indication: Systemic mastocytosis
     Route: 065
     Dates: start: 20241217

REACTIONS (6)
  - Swelling face [Unknown]
  - Abdominal distension [Unknown]
  - Brain fog [Unknown]
  - Diarrhoea [Unknown]
  - Food allergy [Unknown]
  - Vision blurred [Unknown]
